FAERS Safety Report 19247368 (Version 1)
Quarter: 2021Q2

REPORT INFORMATION
  Report Type: Spontaneous
  Country: BR (occurrence: BR)
  Receive Date: 20210512
  Receipt Date: 20210512
  Transmission Date: 20210717
  Serious: Yes (Hospitalization)
  Sender: FDA-Public Use
  Company Number: BR-BAYER-2021-138796

PATIENT
  Age: 41 Year
  Sex: Female

DRUGS (4)
  1. FLORINEFE [Concomitant]
     Indication: BLOOD PRESSURE ABNORMAL
     Dosage: UNK
     Route: 048
     Dates: start: 2018
  2. ZOLPIDEM [Concomitant]
     Active Substance: ZOLPIDEM TARTRATE
     Indication: SLEEP DISORDER
     Dosage: 1 DF, QD
     Route: 048
     Dates: start: 2018
  3. GLUCOBAY [Suspect]
     Active Substance: ACARBOSE
     Indication: HYPOGLYCAEMIA
     Dosage: 2 DF, QD
     Route: 048
     Dates: start: 2020
  4. PREDNISONA [Concomitant]
     Active Substance: PREDNISONE
     Indication: ADRENAL INSUFFICIENCY
     Dosage: 7.5 MG, QD
     Route: 048
     Dates: start: 2018

REACTIONS (2)
  - Blood pressure decreased [Not Recovered/Not Resolved]
  - Off label use [None]
